FAERS Safety Report 7937114 (Version 2)
Quarter: 2014Q3

REPORT INFORMATION
  Report Type: Report from Study
  Country: US (occurrence: US)
  Receive Date: 20110509
  Receipt Date: 20140827
  Transmission Date: 20150326
  Serious: No
  Sender: FDA-Public Use
  Company Number: US-ALEXION-A201100303

PATIENT

DRUGS (2)
  1. SOLIRIS [Suspect]
     Active Substance: ECULIZUMAB
     Dosage: 900 MG, UNK
     Route: 042
  2. SOLIRIS [Suspect]
     Active Substance: ECULIZUMAB
     Indication: PAROXYSMAL NOCTURNAL HAEMOGLOBINURIA
     Dosage: UNK
     Route: 042

REACTIONS (7)
  - Nasopharyngitis [Recovered/Resolved]
  - Extravascular haemolysis [Unknown]
  - Tinnitus [Recovered/Resolved]
  - Fatigue [Unknown]
  - Blood count abnormal [Unknown]
  - Rhinorrhoea [Unknown]
  - Ear discomfort [Recovered/Resolved]
